FAERS Safety Report 8270703-X (Version None)
Quarter: 2012Q2

REPORT INFORMATION
  Report Type: 
  Country: None (occurrence: None)
  Receive Date: 20120406
  Receipt Date: 20120326
  Transmission Date: 20120825
  Serious: Yes (Life-Threatening, Hospitalization)
  Sender: FDA-Public Use
  Company Number: 2012000072

PATIENT
  Age: 62 Year
  Sex: Male

DRUGS (5)
  1. PLAVIX [Suspect]
     Indication: ACUTE CORONARY SYNDROME
     Dosage: 75 MG, QD, ORAL
     Route: 048
     Dates: start: 20110501, end: 20111004
  2. ASPIRIN [Concomitant]
  3. ATORVASTATIN CALCIUM [Suspect]
     Indication: ACUTE CORONARY SYNDROME
     Dosage: 40 MG, QD, ORAL
     Route: 048
     Dates: start: 20110501, end: 20110918
  4. ACEON [Suspect]
     Indication: ACUTE CORONARY SYNDROME
     Dosage: 4 MG, QD, ORAL
     Route: 048
     Dates: start: 20110501, end: 20110918
  5. TENORMIN [Suspect]
     Indication: ACUTE CORONARY SYNDROME
     Dosage: 50 MG, QD, ORAL
     Route: 048
     Dates: start: 20110501

REACTIONS (7)
  - HEPATITIS FULMINANT [None]
  - HEPATIC FIBROSIS [None]
  - POST PROCEDURAL COMPLICATION [None]
  - LIVER TRANSPLANT [None]
  - HEPATIC NECROSIS [None]
  - LARGE INTESTINE PERFORATION [None]
  - PLATELET COUNT DECREASED [None]
